FAERS Safety Report 13390050 (Version 1)
Quarter: 2017Q1

REPORT INFORMATION
  Report Type: Other
  Country: CA (occurrence: CA)
  Receive Date: 20170331
  Receipt Date: 20170331
  Transmission Date: 20170429
  Serious: Yes (Other)
  Sender: FDA-Public Use
  Company Number: CA-APOTEX-2017AP008829

PATIENT
  Age: 88 Year
  Sex: Female

DRUGS (1)
  1. ZOLEDRONIC ACID CONCENTRATE [Suspect]
     Active Substance: ZOLEDRONIC ACID
     Indication: PRODUCT USED FOR UNKNOWN INDICATION
     Dosage: 1 EVERY 1 YEAR (SOLUTION INTRAVENOUS)
     Route: 065

REACTIONS (3)
  - Blood pressure increased [Recovered/Resolved]
  - Influenza like illness [Recovered/Resolved]
  - Peripheral swelling [Recovered/Resolved]
